FAERS Safety Report 9388016 (Version 1)
Quarter: 2013Q3

REPORT INFORMATION
  Report Type: Spontaneous
  Country: FR (occurrence: FR)
  Receive Date: 20130708
  Receipt Date: 20130708
  Transmission Date: 20140515
  Serious: Yes (Hospitalization)
  Sender: FDA-Public Use
  Company Number: FR-TEVA-417314ISR

PATIENT
  Sex: Male
  Weight: 78 kg

DRUGS (2)
  1. BICALUTAMIDE TEVA [Suspect]
     Indication: PROSTATE CANCER
     Dates: start: 20130209, end: 201303
  2. SECALIP [Concomitant]
     Indication: HYPERCHOLESTEROLAEMIA
     Dosage: 100 MILLIGRAM DAILY;
     Dates: start: 20061024

REACTIONS (9)
  - Cardiac failure [Recovered/Resolved with Sequelae]
  - Palpitations [Recovered/Resolved with Sequelae]
  - Supraventricular tachycardia [Unknown]
  - Atrial fibrillation [Unknown]
  - Dyspnoea [Recovered/Resolved with Sequelae]
  - Oedema peripheral [Recovered/Resolved with Sequelae]
  - Decreased appetite [Unknown]
  - Cardiomegaly [None]
  - Pleural effusion [None]
